FAERS Safety Report 9049976 (Version 2)
Quarter: 2013Q2

REPORT INFORMATION
  Report Type: Spontaneous
  Country: US (occurrence: US)
  Receive Date: 20130205
  Receipt Date: 20130410
  Transmission Date: 20140414
  Serious: Yes (Other)
  Sender: FDA-Public Use
  Company Number: US-ELI_LILLY_AND_COMPANY-US201301008929

PATIENT
  Age: 72 Year
  Sex: Male

DRUGS (4)
  1. HUMALOG LISPRO [Suspect]
  2. BYETTA [Concomitant]
  3. LANTUS [Concomitant]
  4. GLYBURIDE [Concomitant]

REACTIONS (1)
  - Renal failure [Unknown]
